FAERS Safety Report 21871108 (Version 1)
Quarter: 2023Q1

REPORT INFORMATION
  Report Type: Spontaneous
  Country: US (occurrence: None)
  Receive Date: 20230116
  Receipt Date: 20230116
  Transmission Date: 20230418
  Serious: Yes (Hospitalization)
  Sender: FDA-Public Use
  Company Number: None

PATIENT
  Age: 60 Year
  Sex: Male
  Weight: 83.25 kg

DRUGS (1)
  1. PAXLOVID [Suspect]
     Active Substance: NIRMATRELVIR\RITONAVIR
     Indication: COVID-19
     Dosage: OTHER QUANTITY : 30 TABLET(S);?FREQUENCY : TWICE A DAY;?
     Route: 048
     Dates: start: 20230107, end: 20230107

REACTIONS (9)
  - Diarrhoea [None]
  - Fall [None]
  - Loss of consciousness [None]
  - Head injury [None]
  - Skeletal injury [None]
  - Blood pressure decreased [None]
  - Troponin increased [None]
  - Dehydration [None]
  - Cardiac disorder [None]

NARRATIVE: CASE EVENT DATE: 20230107
